FAERS Safety Report 8666263 (Version 2)
Quarter: 2013Q2

REPORT INFORMATION
  Report Type: Report from Study
  Country: CA (occurrence: CA)
  Receive Date: 20120716
  Receipt Date: 20130408
  Transmission Date: 20140414
  Serious: Yes (Hospitalization)
  Sender: FDA-Public Use
  Company Number: CA-ROCHE-1087475

PATIENT
  Age: 78 Year
  Sex: Female
  Weight: 78.09 kg

DRUGS (10)
  1. RITUXAN [Suspect]
     Indication: RHEUMATOID ARTHRITIS
     Route: 042
     Dates: start: 20090925
  2. ACTONEL [Concomitant]
  3. CYMBALTA [Concomitant]
  4. FOLIC ACID [Concomitant]
  5. AVAPRO [Concomitant]
  6. PREVACID [Concomitant]
  7. METFORMIN [Concomitant]
  8. METHOTREXATE [Concomitant]
  9. TYLENOL [Concomitant]
  10. HYDROCORTISONE [Concomitant]

REACTIONS (1)
  - Thrombosis [Recovered/Resolved]
